FAERS Safety Report 5881212-7 (Version None)
Quarter: 2008Q3

REPORT INFORMATION
  Report Type: 
  Country: None (occurrence: None)
  Receive Date: 20080912
  Receipt Date: 20080623
  Transmission Date: 20090109
  Serious: No
  Sender: FDA-Public Use
  Company Number: US-ABBOTT-08P-163-0459191-00

PATIENT
  Sex: Male

DRUGS (4)
  1. HUMIRA [Suspect]
     Indication: CROHN'S DISEASE
     Route: 058
     Dates: start: 20080101
  2. MESALAMINE [Concomitant]
     Indication: CROHN'S DISEASE
  3. AZITHIOPRINE [Concomitant]
     Indication: CROHN'S DISEASE
  4. UNREPORTED MEDICINES [Concomitant]
     Indication: DRUG USE FOR UNKNOWN INDICATION

REACTIONS (2)
  - RASH PAPULAR [None]
  - RASH PRURITIC [None]
